FAERS Safety Report 18506420 (Version 1)
Quarter: 2020Q4

REPORT INFORMATION
  Report Type: Spontaneous
  Country: US (occurrence: US)
  Receive Date: 20201116
  Receipt Date: 20201116
  Transmission Date: 20210114
  Serious: Yes (Other)
  Sender: FDA-Public Use
  Company Number: US-PFIZER INC-2020447263

PATIENT
  Age: 97 Year
  Sex: Female

DRUGS (1)
  1. LATANOPROST. [Suspect]
     Active Substance: LATANOPROST
     Indication: GLAUCOMA
     Dosage: 1 DROP, 1X/DAY (UNSURE IF ONE DROP EACH EYE NIGHTLY)
     Route: 047

REACTIONS (6)
  - Eye pain [Unknown]
  - Drug hypersensitivity [Unknown]
  - Vision blurred [Unknown]
  - Blindness [Unknown]
  - Eye irritation [Unknown]
  - Hypoacusis [Unknown]
